FAERS Safety Report 20723595 (Version 1)
Quarter: 2022Q2

REPORT INFORMATION
  Report Type: Spontaneous
  Country: None (occurrence: IT)
  Receive Date: 20220419
  Receipt Date: 20220419
  Transmission Date: 20220721
  Serious: Yes (Other)
  Sender: FDA-Public Use
  Company Number: IT-MLV Pharma LLC-2127900

PATIENT
  Age: 67 Year
  Sex: Female

DRUGS (3)
  1. BETAMETHASONE DIPROPIONATE [Suspect]
     Active Substance: BETAMETHASONE DIPROPIONATE
     Indication: Keratitis fungal
     Route: 061
  2. FLUOROMETHOLONE [Suspect]
     Active Substance: FLUOROMETHOLONE
     Route: 061
  3. POLIHEXANIDE [Suspect]
     Active Substance: POLIHEXANIDE

REACTIONS (2)
  - Keratitis fungal [Recovered/Resolved]
  - Condition aggravated [Recovered/Resolved]
